FAERS Safety Report 23459315 (Version 4)
Quarter: 2024Q1

REPORT INFORMATION
  Report Type: Spontaneous
  Country: JP (occurrence: JP)
  Receive Date: 20240131
  Receipt Date: 20240312
  Transmission Date: 20240410
  Serious: Yes (Hospitalization, Other)
  Sender: FDA-Public Use
  Company Number: JP-002147023-NVSJ2023JP018451

PATIENT
  Age: 48 Year
  Sex: Male

DRUGS (15)
  1. CYCLOPHOSPHAMIDE [Suspect]
     Active Substance: CYCLOPHOSPHAMIDE
     Indication: Bone marrow transplant
     Dosage: UNK
     Route: 065
  2. CYCLOPHOSPHAMIDE [Suspect]
     Active Substance: CYCLOPHOSPHAMIDE
     Indication: Chronic myeloid leukaemia
     Dosage: UNK, 16-JAN-2023
     Route: 065
     Dates: end: 20230116
  3. CYCLOSPORINE [Suspect]
     Active Substance: CYCLOSPORINE
     Indication: Prophylaxis against graft versus host disease
     Dosage: UNK
     Route: 065
  4. CYTARABINE [Suspect]
     Active Substance: CYTARABINE
     Indication: Chronic myeloid leukaemia
     Dosage: UNK, 13-OCT-2022
     Route: 065
     Dates: end: 20221014
  5. CYTARABINE [Suspect]
     Active Substance: CYTARABINE
     Dosage: UNK, 30-NOV-2022
     Route: 065
     Dates: end: 20221201
  6. DECADRON (DEXAMETHASONE SODIUM PHOSPHATE) [Suspect]
     Active Substance: DEXAMETHASONE SODIUM PHOSPHATE
     Indication: Product used for unknown indication
     Dosage: UNK
     Route: 065
  7. DAUNORUBICIN [Suspect]
     Active Substance: DAUNORUBICIN
     Indication: Chronic myeloid leukaemia
     Dosage: UNK, 16-JAN-2023
     Route: 065
     Dates: end: 20230116
  8. METHOTREXATE [Suspect]
     Active Substance: METHOTREXATE
     Indication: Chronic myeloid leukaemia
     Dosage: UNK, 12-OCT-2022
     Route: 065
     Dates: end: 20221012
  9. METHOTREXATE [Suspect]
     Active Substance: METHOTREXATE
     Indication: Prophylaxis against graft versus host disease
     Dosage: UNK, 29-NOV-2022
     Route: 065
     Dates: end: 20221129
  10. PREDNISOLONE [Suspect]
     Active Substance: PREDNISOLONE
     Indication: Chronic myeloid leukaemia
     Dosage: UNK, 12-OCT-2022
     Route: 065
     Dates: end: 20221014
  11. PREDNISOLONE [Suspect]
     Active Substance: PREDNISOLONE
     Dosage: UNK, 29-NOV-2022
     Route: 065
     Dates: end: 20221201
  12. VINCRISTINE [Suspect]
     Active Substance: VINCRISTINE
     Dosage: UNK
     Route: 065
  13. VINCRISTINE [Suspect]
     Active Substance: VINCRISTINE
     Indication: Chronic myeloid leukaemia
     Dosage: UNK, 16-JAN-2023
     Route: 065
     Dates: end: 20230116
  14. IMATINIB [Concomitant]
     Active Substance: IMATINIB
     Indication: Chronic myeloid leukaemia
     Dosage: UNK
     Route: 065
  15. SPRYCEL [Concomitant]
     Active Substance: DASATINIB
     Indication: Chronic myeloid leukaemia
     Dosage: UNK
     Route: 065

REACTIONS (6)
  - Myelosuppression [Recovered/Resolved]
  - Myelosuppression [Recovered/Resolved]
  - Myelosuppression [Recovered/Resolved]
  - Eosinophilia [Recovering/Resolving]
  - Lymphocyte count decreased [Unknown]
  - Arthralgia [Recovering/Resolving]

NARRATIVE: CASE EVENT DATE: 20221024
